FAERS Safety Report 4559387-1 (Version None)
Quarter: 2005Q1

REPORT INFORMATION
  Report Type: 
  Country: None (occurrence: None)
  Receive Date: 20050124
  Receipt Date: 20050113
  Transmission Date: 20050727
  Serious: Yes (Other)
  Sender: FDA-Public Use
  Company Number: US-JNJFOC-20050104493

PATIENT
  Sex: Female

DRUGS (5)
  1. TYLENOL ARTHRITIS PAIN EXTENDED RELEASE [Suspect]
     Route: 049
  2. TYLENOL ARTHRITIS PAIN EXTENDED RELEASE [Suspect]
     Indication: ARTHRITIS
     Route: 049
  3. LISINOPRIL [Concomitant]
     Route: 049
  4. METOPROLOL [Concomitant]
     Route: 049
  5. NORVASC [Concomitant]
     Route: 049

REACTIONS (2)
  - LOSS OF CONSCIOUSNESS [None]
  - VOMITING [None]
